FAERS Safety Report 4389181-6 (Version None)
Quarter: 2004Q2

REPORT INFORMATION
  Report Type: 
  Country: None (occurrence: None)
  Receive Date: 20040628
  Receipt Date: 20040610
  Transmission Date: 20050107
  Serious: Yes (Death)
  Sender: FDA-Public Use
  Company Number: S04-UKI-02580-01

PATIENT
  Sex: Male

DRUGS (1)
  1. CIPRAMIL (CITALOPRAM HYDROBROMIDE) [Suspect]

REACTIONS (4)
  - CHOKING [None]
  - EATING DISORDER [None]
  - INJURY ASPHYXIATION [None]
  - MANIA [None]
